FAERS Safety Report 8096100-8 (Version None)
Quarter: 2012Q1

REPORT INFORMATION
  Report Type: 
  Country: None (occurrence: None)
  Receive Date: 20120131
  Receipt Date: 20120125
  Transmission Date: 20120608
  Serious: Yes (Death, Hospitalization)
  Sender: FDA-Public Use
  Company Number: US-GLAXOSMITHKLINE-A0901281A

PATIENT
  Age: 50 Year
  Sex: Female
  Weight: 81.8 kg

DRUGS (6)
  1. GLUCOTROL [Concomitant]
  2. NEURONTIN [Concomitant]
  3. LOPRESSOR [Concomitant]
  4. PRINIVIL [Concomitant]
  5. AVANDIA [Suspect]
     Indication: DIABETES MELLITUS
     Dosage: 4MG PER DAY
     Route: 048
  6. ZOCOR [Concomitant]

REACTIONS (5)
  - INFECTION [None]
  - CEREBROVASCULAR ACCIDENT [None]
  - ISCHAEMIC CEREBRAL INFARCTION [None]
  - DEATH [None]
  - MYOCARDIAL INFARCTION [None]
